FAERS Safety Report 4329945-8 (Version None)
Quarter: 2004Q1

REPORT INFORMATION
  Report Type: 
  Country: None (occurrence: None)
  Receive Date: 20040329
  Receipt Date: 20040315
  Transmission Date: 20041129
  Serious: Yes (Hospitalization)
  Sender: FDA-Public Use
  Company Number: 2004CG00233

PATIENT
  Age: 73 Year
  Sex: Male

DRUGS (1)
  1. CASODEX [Suspect]
     Indication: PROSTATE CANCER
     Dosage: 50 MG DAILY PO
     Route: 048
     Dates: start: 20020101

REACTIONS (7)
  - BLOOD IMMUNOGLOBULIN M INCREASED [None]
  - C-REACTIVE PROTEIN INCREASED [None]
  - CHILLS [None]
  - ERYTHEMA [None]
  - NAUSEA [None]
  - PYREXIA [None]
  - SMOOTH MUSCLE ANTIBODY POSITIVE [None]
